FAERS Safety Report 7245023-2 (Version None)
Quarter: 2011Q1

REPORT INFORMATION
  Report Type: 
  Country: None (occurrence: None)
  Receive Date: 20110118
  Receipt Date: 20110106
  Transmission Date: 20110831
  Serious: Yes (Death, Life-Threatening)
  Sender: FDA-Public Use
  Company Number: 2010030766

PATIENT
  Age: 42 Year
  Sex: Male

DRUGS (27)
  1. INSULIN RAPID (INSULIN HUMAN) [Suspect]
     Indication: HYPERGLYCAEMIA
     Dosage: INTRAVENOUS
     Route: 042
     Dates: start: 20080221, end: 20080308
  2. NEXIUM [Suspect]
     Indication: PROPHYLAXIS AGAINST GASTROINTESTINAL ULCER
     Dosage: 40 MG, 1X/DAY, INTRAVENOUS ; 20 MG, 1X/DAY, INTRAVENOUS
     Route: 061
     Dates: start: 20080222
  3. LEDERFOLAT (CALCIUM FOLINATE) [Suspect]
     Indication: SUPPLEMENTATION THERAPY
     Dosage: 15 MG, 1X/DAY, OARL
     Route: 048
     Dates: start: 20080225, end: 20080306
  4. CILOXAN [Suspect]
     Indication: EAR INFECTION
     Dosage: AURICULAR
     Route: 001
     Dates: start: 20080227, end: 20080306
  5. KONAKION [Suspect]
     Indication: SUPPLEMENTATION THERAPY
     Dosage: 1 DF, INTRAVENOUS
     Route: 042
     Dates: start: 20080228, end: 20080305
  6. THIAMINE HCL [Suspect]
     Indication: SUPPLEMENTATION THERAPY
     Dosage: 100 MG, ORAL
     Route: 048
     Dates: start: 20080228, end: 20080306
  7. ACETAMINOPHEN [Suspect]
     Indication: PYREXIA
     Dosage: 5 MG, 3X/DAY, INTRAVENOUS
     Route: 042
     Dates: start: 20080221, end: 20080222
  8. LAVASEPT (EPIRIZOLE) [Suspect]
     Indication: ACNE
     Dosage: TOPICAL
     Route: 061
     Dates: start: 20080223, end: 20080225
  9. ADVANTAN (METHYLPREDNISOLONE ACEPONATE) [Suspect]
     Indication: ACNE
     Dosage: TOPICAL
     Route: 061
     Dates: start: 20080225, end: 20080227
  10. SULFADIAZINE [Suspect]
     Indication: TOXOPLASMOSIS
     Dosage: 1.5 G, 3X/DAY, INTRAVENOUS
     Route: 042
     Dates: start: 20080225, end: 20080306
  11. NIZORAL [Suspect]
     Indication: ACNE
     Dosage: TOPICAL
     Route: 061
     Dates: start: 20080225, end: 20080306
  12. LAVASEPT (EPIRIZOLE) [Suspect]
     Indication: EAR INFECTION
     Dosage: AURICULAR
     Route: 001
     Dates: start: 20080227, end: 20080306
  13. LORAZEPAM [Suspect]
     Indication: HALLUCINATION
     Dosage: 0.5 DF, 3X/DAY, INTRAVENOUS ; 0.5 MG, 3X/DAY
     Route: 042
     Dates: start: 20080221
  14. PIPERACILLIN AND TAZOBACTAM [Suspect]
     Indication: SEPSIS
     Dosage: 4.5 MG, 3X/DAY, INTRAVENOUS
     Route: 042
     Dates: start: 20080226, end: 20080306
  15. HALDOL [Suspect]
     Indication: PYREXIA
     Dosage: 5 MG, 3X/DAY, ORAL
     Route: 048
     Dates: start: 20080302, end: 20080306
  16. VANCOMYCIN [Suspect]
     Indication: EAR INFECTION
     Dosage: 1 G, 2X/DAY, INTRAVENOUS
     Route: 042
     Dates: start: 20080221, end: 20080301
  17. FRAGMIN [Suspect]
     Indication: THROMBOSIS PROPHYLAXIS
     Dosage: 0.2 ML, 1X/DAY, SUBCUTANEOUS
     Route: 058
     Dates: start: 20080221, end: 20080306
  18. ZOVIRAX [Suspect]
     Indication: ENCEPHALITIS HERPES
     Dosage: 750 MG, 3X/DAY, INTRAVENOUS
     Route: 042
     Dates: start: 20080221, end: 20080225
  19. VITAMIN B1 TAB [Suspect]
     Indication: VITAMIN SUPPLEMENTATION
     Dosage: 100 MG, 1X/DAY, INTRAVENOUS
     Route: 042
     Dates: start: 20080221, end: 20080228
  20. LEVOFLOXACIN [Suspect]
     Indication: SEPSIS
     Dosage: 500 MG, 2X/DAY, INTRAVENOUS
     Route: 042
     Dates: start: 20080301, end: 20080306
  21. AMINOVEN (AMINO ACIDS NOS) [Suspect]
     Indication: SUPPLEMENTATION THERAPY
     Dosage: INTRAVENOUS
     Route: 042
     Dates: start: 20080221, end: 20080306
  22. MIDAZOLAM HYDROCHLORIDE [Suspect]
     Indication: DELIRIUM
     Dosage: 5 MG, INTRAVENOUS
     Route: 042
     Dates: start: 20080220, end: 20080220
  23. DARAPRIM [Suspect]
     Indication: TOXOPLASMOSIS
     Dosage: 25 MG, 2X/DAY, ORAL
     Route: 048
     Dates: start: 20080225
  24. ASPISOL (ACETYLSALICYLIC LYSINE) [Suspect]
     Indication: THROMBOSIS PROPHYLAXIS
     Dosage: 250 MG, INTRAVENOUS
     Route: 042
     Dates: start: 20080221, end: 20080225
  25. CEFTAZIDIME PENTAHYDRATE [Suspect]
     Indication: SEPSIS
     Dosage: 2 G, 3X/DAY, INTRAVENOUS
     Route: 042
     Dates: start: 20080221, end: 20080226
  26. HALDOL [Suspect]
     Indication: HALLUCINATION
     Dosage: 5 MG, 3X/DAY, INTRAVENOUS 5 MG, 2X/DAY
     Route: 042
     Dates: start: 20080221, end: 20080222
  27. HALDOL [Suspect]
     Indication: HALLUCINATION
     Dosage: 5 MG, 3X/DAY, INTRAVENOUS 5 MG, 2X/DAY
     Route: 042
     Dates: start: 20080224, end: 20080301

REACTIONS (8)
  - RESTLESSNESS [None]
  - DYSPNOEA [None]
  - HYPONATRAEMIA [None]
  - MASTOIDITIS [None]
  - SEPTIC SHOCK [None]
  - TOXIC EPIDERMAL NECROLYSIS [None]
  - STEVENS-JOHNSON SYNDROME [None]
  - DELIRIUM [None]
